FAERS Safety Report 10573374 (Version 1)
Quarter: 2014Q4

REPORT INFORMATION
  Report Type: Spontaneous
  Country: TW (occurrence: None)
  Receive Date: 20141030
  Receipt Date: 20141030
  Transmission Date: 20150529
  Serious: Yes (Other)
  Sender: FDA-Public Use
  Company Number: PHHY2014TW088219

PATIENT
  Age: 60 Year
  Sex: Male
  Weight: 65.8 kg

DRUGS (3)
  1. MYCOPHENOLATE(MYCOPHENOLATE MOFETIL) [Concomitant]
  2. TACROLIMUS. [Concomitant]
     Active Substance: TACROLIMUS
  3. SEBIVO [Suspect]
     Active Substance: TELBIVUDINE
     Indication: HEPATITIS B
     Route: 048
     Dates: start: 20140303, end: 20140623

REACTIONS (1)
  - Pain in extremity [None]

NARRATIVE: CASE EVENT DATE: 20140523
